FAERS Safety Report 11982130 (Version 1)
Quarter: 2016Q1

REPORT INFORMATION
  Report Type: Spontaneous
  Country: US (occurrence: None)
  Receive Date: 20160129
  Receipt Date: 20160129
  Transmission Date: 20160526
  Serious: No
  Sender: FDA-Public Use
  Company Number: None

PATIENT
  Age: 48 Year
  Sex: Female
  Weight: 81.65 kg

DRUGS (13)
  1. LORAZEPAM. [Suspect]
     Active Substance: LORAZEPAM
     Indication: ANXIETY
     Dosage: 2 MG TABLET, 1 PILL, AT BEDTIME, BY MOUTH
     Dates: start: 20160105
  2. MELATONIN [Concomitant]
     Active Substance: MELATONIN
  3. LITHIUM. [Concomitant]
     Active Substance: LITHIUM
  4. FISH OIL [Concomitant]
     Active Substance: FISH OIL
  5. VENLAFAXINE [Concomitant]
     Active Substance: VENLAFAXINE HYDROCHLORIDE
  6. SABODIL [Concomitant]
  7. LORAZEPAM. [Suspect]
     Active Substance: LORAZEPAM
     Indication: SLEEP DISORDER
     Dosage: 2 MG TABLET, 1 PILL, AT BEDTIME, BY MOUTH
     Dates: start: 20160105
  8. MAGNESIUM [Concomitant]
     Active Substance: MAGNESIUM
  9. OMEGA 3 [Concomitant]
     Active Substance: OMEGA-3 FATTY ACIDS
  10. MULTIVITAMIN [Concomitant]
     Active Substance: VITAMINS
  11. VITAMIN B [Concomitant]
     Active Substance: VITAMIN B
  12. COLLAGEN [Concomitant]
     Active Substance: COLLAGEN
  13. FOLIC ACID. [Concomitant]
     Active Substance: FOLIC ACID

REACTIONS (2)
  - Tremor [None]
  - Drug ineffective [None]

NARRATIVE: CASE EVENT DATE: 20160105
